FAERS Safety Report 9052576 (Version 2)
Quarter: 2013Q1

REPORT INFORMATION
  Report Type: Spontaneous
  Country: IT (occurrence: IT)
  Receive Date: 20130207
  Receipt Date: 20130314
  Transmission Date: 20140127
  Serious: Yes (Hospitalization)
  Sender: FDA-Public Use
  Company Number: IT-BRISTOL-MYERS SQUIBB COMPANY-17335274

PATIENT
  Age: 43 Year
  Sex: Female

DRUGS (1)
  1. COUMADIN TABS 5 MG [Suspect]
     Indication: ATRIAL FIBRILLATION
     Dosage: 10-JAN-2013
     Route: 048
     Dates: start: 20100101

REACTIONS (2)
  - Fall [Recovered/Resolved]
  - Haemothorax [Recovered/Resolved]
